FAERS Safety Report 6751472-9 (Version None)
Quarter: 2010Q2

REPORT INFORMATION
  Report Type: 
  Country: None (occurrence: None)
  Receive Date: 20100602
  Receipt Date: 20100521
  Transmission Date: 20101027
  Serious: Yes (Hospitalization)
  Sender: FDA-Public Use
  Company Number: US-ROCHE-698900

PATIENT
  Sex: Female
  Weight: 57.6 kg

DRUGS (1)
  1. BONIVA [Suspect]
     Indication: BONE DENSITY DECREASED
     Route: 048
     Dates: start: 20060101, end: 20100101

REACTIONS (1)
  - FEMUR FRACTURE [None]
